FAERS Safety Report 5032833-5 (Version None)
Quarter: 2006Q2

REPORT INFORMATION
  Report Type: 
  Country: None (occurrence: None)
  Receive Date: 20060620
  Receipt Date: 20060607
  Transmission Date: 20061013
  Serious: Yes (Death)
  Sender: FDA-Public Use
  Company Number: 2006AP000422

PATIENT
  Sex: Female

DRUGS (1)
  1. PAROXETINE HCL [Suspect]
     Indication: FATIGUE
     Dates: start: 20031001, end: 20031028

REACTIONS (2)
  - COMPLETED SUICIDE [None]
  - PHARMACEUTICAL PRODUCT COMPLAINT [None]
